FAERS Safety Report 4870399-0 (Version None)
Quarter: 2005Q4

REPORT INFORMATION
  Report Type: 
  Country: None (occurrence: None)
  Receive Date: 20051228
  Receipt Date: 20051216
  Transmission Date: 20060501
  Serious: Yes (Other)
  Sender: FDA-Public Use
  Company Number: 2005170605

PATIENT
  Age: 75 Year
  Sex: Male
  Weight: 95.2554 kg

DRUGS (10)
  1. MEDROL [Suspect]
     Indication: COUGH
  2. DYAZIDE [Suspect]
     Indication: ILL-DEFINED DISORDER
  3. PROZAC [Suspect]
     Indication: ILL-DEFINED DISORDER
  4. MAXZIDE [Concomitant]
  5. ACCUPRIL [Concomitant]
  6. TENORMIN [Concomitant]
  7. HYTRIN [Concomitant]
  8. PRILOSEC [Concomitant]
  9. ALEVE [Concomitant]
  10. ADVAIR DISKUS 100/50 [Concomitant]

REACTIONS (6)
  - BENIGN LARYNGEAL NEOPLASM [None]
  - DRUG INEFFECTIVE [None]
  - DYSPHONIA [None]
  - FATIGUE [None]
  - HYPONATRAEMIA [None]
  - ORAL CANDIDIASIS [None]
